FAERS Safety Report 4681024-6 (Version None)
Quarter: 2005Q2

REPORT INFORMATION
  Report Type: 
  Country: None (occurrence: None)
  Receive Date: 20050601
  Receipt Date: 20050520
  Transmission Date: 20051028
  Serious: Yes (Other)
  Sender: FDA-Public Use
  Company Number: 2004105750

PATIENT
  Sex: Male

DRUGS (1)
  1. BEXTRA [Suspect]
     Indication: SHOULDER PAIN
     Dates: start: 20041001, end: 20041001

REACTIONS (2)
  - ORAL MUCOSAL BLISTERING [None]
  - TONGUE BLISTERING [None]
